FAERS Safety Report 7576559-2 (Version None)
Quarter: 2011Q2

REPORT INFORMATION
  Report Type: 
  Country: None (occurrence: None)
  Receive Date: 20110628
  Receipt Date: 20100304
  Transmission Date: 20111010
  Serious: Yes (Death, Other)
  Sender: FDA-Public Use
  Company Number: US-BAYER-201015587NA

PATIENT
  Age: 65 Year
  Sex: Male
  Weight: 102 kg

DRUGS (6)
  1. LASIX [Concomitant]
  2. PROCARDIA [Concomitant]
  3. K-DUR [Concomitant]
  4. LOPID [Concomitant]
  5. TRASYLOL [Suspect]
     Indication: VASCULAR GRAFT
     Dates: start: 19970211
  6. LANOXIN [Concomitant]

REACTIONS (5)
  - RENAL FAILURE ACUTE [None]
  - DEATH [None]
  - PAIN [None]
  - RENAL FAILURE [None]
  - INJURY [None]
